FAERS Safety Report 5137596-0 (Version None)
Quarter: 2006Q4

REPORT INFORMATION
  Report Type: 
  Country: None (occurrence: None)
  Receive Date: 20061030
  Receipt Date: 20051130
  Transmission Date: 20070319
  Serious: No
  Sender: FDA-Public Use
  Company Number: US-GLAXOSMITHKLINE-A0584071A

PATIENT
  Age: 67 Year
  Sex: Male

DRUGS (4)
  1. ADVAIR HFA [Suspect]
     Indication: WHEEZING
     Dosage: 1PUFF PER DAY
     Route: 055
     Dates: start: 20051130
  2. TRIAMTERENE AND HYDROCHLOROTHIAZIDE [Concomitant]
  3. CRESTOR [Concomitant]
  4. ASPIRIN [Concomitant]

REACTIONS (2)
  - DRUG INEFFECTIVE [None]
  - OFF LABEL USE [None]
